FAERS Safety Report 15049447 (Version 3)
Quarter: 2019Q1

REPORT INFORMATION
  Report Type: Spontaneous
  Country: US (occurrence: US)
  Receive Date: 20180622
  Receipt Date: 20190215
  Transmission Date: 20190417
  Serious: No
  Sender: FDA-Public Use
  Company Number: US-PFIZER INC-2018253074

PATIENT
  Age: 62 Year
  Sex: Female

DRUGS (2)
  1. IBRANCE [Suspect]
     Active Substance: PALBOCICLIB
     Dosage: 125 MG, CYCLIC (ONE CAPSULE DAILY FOR 21 DAYS ON, THEN 7 DAYS OFF)
     Route: 048
     Dates: start: 20181101
  2. IBRANCE [Suspect]
     Active Substance: PALBOCICLIB
     Indication: BREAST CANCER FEMALE
     Dosage: 125 MG, CYCLIC (ONE CAPSULE DAILY FOR 21 DAYS ON, THEN 7 DAYS OFF)
     Route: 048
     Dates: start: 20170601, end: 20181029

REACTIONS (3)
  - Hypoaesthesia [Not Recovered/Not Resolved]
  - Blood test abnormal [Unknown]
  - Fatigue [Not Recovered/Not Resolved]

NARRATIVE: CASE EVENT DATE: 201806
